FAERS Safety Report 4542572-2 (Version None)
Quarter: 2004Q4

REPORT INFORMATION
  Report Type: 
  Country: None (occurrence: None)
  Receive Date: 20041230
  Receipt Date: 20041124
  Transmission Date: 20050328
  Serious: Yes (Life-Threatening, Disabling)
  Sender: FDA-Public Use
  Company Number: US-MERCK-0411USA03990

PATIENT
  Age: 58 Year
  Sex: Male

DRUGS (7)
  1. VIOXX [Suspect]
     Indication: ARTHRITIS
     Route: 048
     Dates: start: 19990701, end: 20000801
  2. VIOXX [Suspect]
     Route: 048
     Dates: start: 20011201, end: 20030601
  3. VIOXX [Suspect]
     Route: 048
     Dates: start: 20000801, end: 20011201
  4. PRILOSEC [Concomitant]
     Route: 065
     Dates: start: 19990701
  5. CLARINEX [Concomitant]
     Route: 065
  6. CLARITIN-D [Concomitant]
     Route: 065
  7. VIAGRA [Concomitant]
     Route: 065

REACTIONS (10)
  - ARTHRALGIA [None]
  - ARTHROPATHY [None]
  - BURSITIS [None]
  - CYST [None]
  - DYSPNOEA [None]
  - FATIGUE [None]
  - JOINT SWELLING [None]
  - MUSCULAR WEAKNESS [None]
  - OEDEMA PERIPHERAL [None]
  - TACHYCARDIA [None]
